FAERS Safety Report 14252624 (Version 1)
Quarter: 2017Q4

REPORT INFORMATION
  Report Type: Spontaneous
  Country: US (occurrence: US)
  Receive Date: 20171205
  Receipt Date: 20171205
  Transmission Date: 20180321
  Serious: No
  Sender: FDA-Public Use
  Company Number: US-TEVA-762546ACC

PATIENT
  Age: 82 Year
  Sex: Female

DRUGS (2)
  1. OMEPRAZOLE. [Concomitant]
     Active Substance: OMEPRAZOLE
  2. BUDESONIDE. [Suspect]
     Active Substance: BUDESONIDE
     Indication: ASTHMA
     Dosage: INHALATION SUSPENSION; 0.25 MG/2 ML
     Route: 065
     Dates: start: 2013

REACTIONS (2)
  - Rash [Unknown]
  - Night sweats [Unknown]

NARRATIVE: CASE EVENT DATE: 2016
